FAERS Safety Report 10073880 (Version 1)
Quarter: 2014Q2

REPORT INFORMATION
  Report Type: Spontaneous
  Country: US (occurrence: US)
  Receive Date: 20140411
  Receipt Date: 20140411
  Transmission Date: 20141212
  Serious: Yes (Death, Other)
  Sender: FDA-Public Use
  Company Number: PHHY2014US041625

PATIENT
  Age: 40 Year
  Sex: Male

DRUGS (5)
  1. TEMOZOLOMIDE [Suspect]
     Indication: BLOOD CORTISOL INCREASED
     Dosage: 200 MG/M2, UNK
  2. CISPLATIN [Suspect]
     Indication: METASTATIC NEOPLASM
     Dosage: 80 MG/M2, UNK
  3. ETOPOSIDE [Suspect]
     Indication: METASTATIC NEOPLASM
     Dosage: 100 MG/M2, UNK
  4. CARBOPLATIN [Suspect]
  5. CABERGOLINE [Suspect]
     Indication: BLOOD CORTISOL INCREASED

REACTIONS (14)
  - Death [Fatal]
  - Adrenal insufficiency [Unknown]
  - Hypotension [Unknown]
  - Asthenia [Unknown]
  - Fatigue [Unknown]
  - Renal failure [Unknown]
  - ACTH-producing pituitary tumour [Unknown]
  - Blood corticotrophin increased [Unknown]
  - Neoplasm progression [Unknown]
  - Metastases to meninges [Unknown]
  - Convulsion [Unknown]
  - Malignant pituitary tumour [Unknown]
  - Brain oedema [Unknown]
  - Drug ineffective [Unknown]
